FAERS Safety Report 5057160-1 (Version None)
Quarter: 2006Q2

REPORT INFORMATION
  Report Type: 
  Country: None (occurrence: None)
  Receive Date: 20060622
  Receipt Date: 20060113
  Transmission Date: 20061013
  Serious: Yes (Disabling, Other)
  Sender: FDA-Public Use
  Company Number: US-JNJFOC-20050902170

PATIENT
  Age: 78 Year
  Sex: Male
  Weight: 140.6151 kg

DRUGS (2)
  1. FENTANYL [Suspect]
     Indication: PAIN
     Dosage: SEE IMAGE
     Route: 062
     Dates: start: 20050712, end: 20050718
  2. FENTANYL [Suspect]
     Indication: PAIN
     Dosage: SEE IMAGE
     Route: 062
     Dates: start: 20050718, end: 20050727

REACTIONS (3)
  - DRUG INEFFECTIVE [None]
  - EMOTIONAL DISTRESS [None]
  - GAIT DISTURBANCE [None]
